FAERS Safety Report 10466103 (Version 1)
Quarter: 2014Q3

REPORT INFORMATION
  Report Type: Spontaneous
  Country: US (occurrence: None)
  Receive Date: 20140919
  Receipt Date: 20140919
  Transmission Date: 20150326
  Serious: Yes (Life-Threatening, Disabling)
  Sender: FDA-Public Use
  Company Number: None

PATIENT
  Age: 69 Year
  Sex: Female
  Weight: 77.11 kg

DRUGS (15)
  1. ASPIRIN. [Concomitant]
     Active Substance: ASPIRIN
  2. METFORMIN [Concomitant]
     Active Substance: METFORMIN HYDROCHLORIDE
  3. CARVEDILOL. [Concomitant]
     Active Substance: CARVEDILOL
  4. AMLODIPINE [Concomitant]
     Active Substance: AMLODIPINE BESYLATE
  5. VALSARTAN AND HYDROCHLOROTHIAZIDE [Concomitant]
     Active Substance: HYDROCHLOROTHIAZIDE\VALSARTAN
  6. LEVOTHYROX [Concomitant]
     Active Substance: LEVOTHYROXINE
  7. NITROFURANTOIN. [Suspect]
     Active Substance: NITROFURANTOIN
     Indication: URINARY TRACT INFECTION
     Dosage: 50 MG, 1-DAILY, MOUTH
     Route: 048
     Dates: start: 20110201, end: 20131127
  8. CENTRUM SILVER [Concomitant]
     Active Substance: VITAMINS
  9. OMEPRAZOLE. [Concomitant]
     Active Substance: OMEPRAZOLE
  10. POTCHLOR [Concomitant]
  11. TRAMADOL [Concomitant]
     Active Substance: TRAMADOL
  12. CRESTOR [Concomitant]
     Active Substance: ROSUVASTATIN CALCIUM
  13. GABAPENTINE [Concomitant]
     Active Substance: GABAPENTIN
  14. VITAMIN C [Concomitant]
     Active Substance: ASCORBIC ACID
  15. FISH OIL [Concomitant]
     Active Substance: FISH OIL

REACTIONS (7)
  - Aphagia [None]
  - Cough [None]
  - Asthenia [None]
  - Weight decreased [None]
  - Toxicity to various agents [None]
  - Pulmonary toxicity [None]
  - Traumatic lung injury [None]

NARRATIVE: CASE EVENT DATE: 201310
